FAERS Safety Report 10042231 (Version 1)
Quarter: 2014Q1

REPORT INFORMATION
  Report Type: Spontaneous
  Country: US (occurrence: US)
  Receive Date: 20140327
  Receipt Date: 20140327
  Transmission Date: 20141002
  Serious: No
  Sender: FDA-Public Use
  Company Number: US-BAYER-2014-041795

PATIENT
  Age: 52 Year
  Sex: Female

DRUGS (2)
  1. CLIMARA [Suspect]
     Indication: HOT FLUSH
     Dosage: 0.1 MG, UNK
     Dates: start: 2004
  2. CLIMARA [Suspect]
     Indication: HOT FLUSH
     Dosage: 0.75 ?G, UNK
     Route: 062

REACTIONS (3)
  - Irritability [None]
  - Drug ineffective [Not Recovered/Not Resolved]
  - Inappropriate schedule of drug administration [None]
